FAERS Safety Report 18423469 (Version 1)
Quarter: 2020Q4

REPORT INFORMATION
  Report Type: Spontaneous
  Country: US (occurrence: US)
  Receive Date: 20201024
  Receipt Date: 20201024
  Transmission Date: 20210114
  Serious: Yes (Life-Threatening, Other)
  Sender: FDA-Public Use
  Company Number: US-LEADINGPHARMA-US-2020LEALIT00156

PATIENT
  Age: 74 Year
  Sex: Male

DRUGS (3)
  1. FOSPHENYTOIN [Concomitant]
     Active Substance: FOSPHENYTOIN
     Indication: STATUS EPILEPTICUS
     Route: 065
  2. LORAZEPAM TABLETS USP [Suspect]
     Active Substance: LORAZEPAM
     Indication: STATUS EPILEPTICUS
     Route: 042
  3. FOSPHENYTOIN [Concomitant]
     Active Substance: FOSPHENYTOIN
     Route: 065

REACTIONS (2)
  - Product use in unapproved indication [Unknown]
  - Drug ineffective [Unknown]
